FAERS Safety Report 20404798 (Version 4)
Quarter: 2024Q2

REPORT INFORMATION
  Report Type: Spontaneous
  Country: AU (occurrence: AU)
  Receive Date: 20220131
  Receipt Date: 20240607
  Transmission Date: 20240716
  Serious: Yes (Other)
  Sender: FDA-Public Use
  Company Number: AU-NOVARTISPH-NVSC2022AU013749

PATIENT
  Sex: Male

DRUGS (2)
  1. RITUXIMAB [Suspect]
     Active Substance: RITUXIMAB
     Indication: Hairy cell leukaemia recurrent
     Dosage: UNK
     Route: 065
     Dates: end: 202111
  2. TAFINLAR [Suspect]
     Active Substance: DABRAFENIB MESYLATE
     Indication: Hairy cell leukaemia
     Dosage: 150 MG, BID
     Route: 065

REACTIONS (10)
  - Pancytopenia [Unknown]
  - Thrombocytopenia [Unknown]
  - Bone pain [Recovering/Resolving]
  - Chromosome analysis abnormal [Unknown]
  - Back pain [Unknown]
  - Pyrexia [Unknown]
  - Arthralgia [Unknown]
  - Drug ineffective [Unknown]
  - Therapy non-responder [Unknown]
  - Product use in unapproved indication [Unknown]
